FAERS Safety Report 15618091 (Version 1)
Quarter: 2018Q4

REPORT INFORMATION
  Report Type: Spontaneous
  Country: US (occurrence: US)
  Receive Date: 20181114
  Receipt Date: 20181114
  Transmission Date: 20190205
  Serious: Yes (Hospitalization, Other)
  Sender: FDA-Public Use
  Company Number: US-BAYER-2018-210973

PATIENT
  Age: 27 Year
  Sex: Male

DRUGS (3)
  1. METAMFETAMINE [Concomitant]
     Active Substance: METHAMPHETAMINE
     Indication: BACK PAIN
  2. DEXTROMETHORPHAN HYDROBROMIDE+GUAIFENESIN [Suspect]
     Active Substance: DEXTROMETHORPHAN HYDROBROMIDE\GUAIFENESIN
     Route: 048
  3. PARACETAMOL [Suspect]
     Active Substance: ACETAMINOPHEN

REACTIONS (7)
  - Serotonin syndrome [Unknown]
  - Metabolic acidosis [Recovered/Resolved]
  - Neuropsychiatric symptoms [Recovered/Resolved]
  - Tachycardia [Recovered/Resolved]
  - Hyperchloraemia [Recovered/Resolved]
  - Toxicity to various agents [Unknown]
  - Drug abuse [Unknown]
